FAERS Safety Report 4409519-0 (Version None)
Quarter: 2004Q3

REPORT INFORMATION
  Report Type: 
  Country: None (occurrence: None)
  Receive Date: 20040723
  Receipt Date: 20040713
  Transmission Date: 20050211
  Serious: Yes (Other)
  Sender: FDA-Public Use
  Company Number: 2004030829

PATIENT
  Sex: Female

DRUGS (5)
  1. ZOLOFT [Suspect]
     Indication: EMOTIONAL DISORDER
     Dosage: ORAL
     Route: 048
  2. ZOLOFT [Suspect]
     Indication: NERVOUSNESS
     Dosage: ORAL
     Route: 048
  3. CELECOXIB (CELECOXIB) [Suspect]
     Indication: ARTHRALGIA
     Dosage: ORAL
     Route: 048
     Dates: start: 20040101, end: 20040101
  4. TOPIRAMATE [Suspect]
     Indication: EMOTIONAL DISORDER
     Dosage: ORAL
     Route: 048
  5. TOPIRAMATE [Suspect]
     Indication: NERVOUSNESS
     Dosage: ORAL
     Route: 048

REACTIONS (11)
  - ARTHRALGIA [None]
  - ARTHRITIS [None]
  - FRACTURE NONUNION [None]
  - HYPOAESTHESIA [None]
  - IMPAIRED HEALING [None]
  - LOWER LIMB FRACTURE [None]
  - MUSCULOSKELETAL DISORDER [None]
  - PAIN IN EXTREMITY [None]
  - RASH [None]
  - WEIGHT DECREASED [None]
  - WEIGHT INCREASED [None]
